FAERS Safety Report 17997564 (Version 3)
Quarter: 2020Q3

REPORT INFORMATION
  Report Type: Report from Study
  Country: US (occurrence: US)
  Receive Date: 20200709
  Receipt Date: 20200806
  Transmission Date: 20201103
  Serious: Yes (Hospitalization, Other)
  Sender: FDA-Public Use
  Company Number: US-GILEAD-2020-0479632

PATIENT
  Age: 74 Year
  Sex: Female
  Weight: 53.97 kg

DRUGS (9)
  1. AMBRISENTAN [Suspect]
     Active Substance: AMBRISENTAN
     Indication: PULMONARY ARTERIAL HYPERTENSION
     Dosage: UNK
     Route: 065
  2. ADEMPAS [Suspect]
     Active Substance: RIOCIGUAT
     Dosage: 1.5 MG, TID
     Route: 065
  3. TYVASO [Suspect]
     Active Substance: TREPROSTINIL
     Indication: PULMONARY ARTERIAL HYPERTENSION
     Dosage: UNK
     Route: 055
     Dates: start: 20171017
  4. PANTOPRAZOLE [Suspect]
     Active Substance: PANTOPRAZOLE
     Indication: PRODUCT USED FOR UNKNOWN INDICATION
     Dosage: UNK
     Route: 065
  5. ADEMPAS [Suspect]
     Active Substance: RIOCIGUAT
     Indication: PRODUCT USED FOR UNKNOWN INDICATION
     Dosage: 2.5 MG, TID
     Route: 065
  6. OPSUMIT [Concomitant]
     Active Substance: MACITENTAN
  7. TYVASO [Suspect]
     Active Substance: TREPROSTINIL
     Dosage: UNK
     Route: 055
  8. ELIQUIS [Concomitant]
     Active Substance: APIXABAN
  9. TYVASO [Suspect]
     Active Substance: TREPROSTINIL
     Dosage: 18?54 UG (3?9 BREATHS), QID
     Route: 055

REACTIONS (17)
  - Seizure [Unknown]
  - Pneumonia [Unknown]
  - Muscular weakness [Unknown]
  - Diarrhoea [Recovered/Resolved]
  - Dehydration [Recovered/Resolved]
  - Nasal congestion [Unknown]
  - Decreased appetite [Recovered/Resolved]
  - Dyspnoea [Unknown]
  - Urticaria [Unknown]
  - Rosacea [Unknown]
  - Colitis microscopic [Unknown]
  - Hypotension [Recovered/Resolved]
  - Dizziness [Recovered/Resolved]
  - Hepatic cirrhosis [Unknown]
  - Blood alkaline phosphatase increased [Recovered/Resolved]
  - Atrial fibrillation [Unknown]
  - Psoriasis [Unknown]

NARRATIVE: CASE EVENT DATE: 202003
